FAERS Safety Report 9781952 (Version 1)
Quarter: 2013Q4

REPORT INFORMATION
  Report Type: Spontaneous
  Country: RU (occurrence: RU)
  Receive Date: 20131225
  Receipt Date: 20131225
  Transmission Date: 20140711
  Serious: Yes (Life-Threatening)
  Sender: FDA-Public Use
  Company Number: PHHY2013RU150638

PATIENT
  Age: 47 Year
  Sex: Male

DRUGS (1)
  1. TEGRETOL [Suspect]
     Route: 048

REACTIONS (3)
  - Epilepsy [Recovered/Resolved]
  - Mental disorder [Recovered/Resolved]
  - Drug ineffective [Recovered/Resolved]
